FAERS Safety Report 8303009-0 (Version None)
Quarter: 2012Q2

REPORT INFORMATION
  Report Type: 
  Country: None (occurrence: None)
  Receive Date: 20120421
  Receipt Date: 20100914
  Transmission Date: 20120825
  Serious: Yes (Hospitalization, Other)
  Sender: FDA-Public Use
  Company Number: PHHY2010TH093759

PATIENT
  Sex: Male

DRUGS (1)
  1. GLEEVEC [Suspect]
     Indication: GASTROINTESTINAL STROMAL TUMOUR

REACTIONS (10)
  - GASTROINTESTINAL PAIN [None]
  - HAEMORRHOIDS [None]
  - GASTROINTESTINAL DISORDER [None]
  - PALLOR [None]
  - ACNE [None]
  - FREQUENT BOWEL MOVEMENTS [None]
  - HAEMORRHOIDAL HAEMORRHAGE [None]
  - THROMBOCYTOPENIA [None]
  - FLATULENCE [None]
  - ASTHENIA [None]
